FAERS Safety Report 8394716-2 (Version None)
Quarter: 2012Q2

REPORT INFORMATION
  Report Type: 
  Country: None (occurrence: None)
  Receive Date: 20120530
  Receipt Date: 20120525
  Transmission Date: 20120825
  Serious: No
  Sender: FDA-Public Use
  Company Number: US-PFIZER INC-2012127317

PATIENT
  Sex: Female

DRUGS (2)
  1. VORICONAZOLE [Suspect]
     Indication: FUNGAL INFECTION
     Dosage: 100 MG, 1X/DAY
  2. PREDNISONE [Concomitant]
     Dosage: UNK

REACTIONS (5)
  - CIRCUMSTANCE OR INFORMATION CAPABLE OF LEADING TO MEDICATION ERROR [None]
  - ALOPECIA [None]
  - RESPIRATORY DISORDER [None]
  - ERYTHEMA [None]
  - FUNGAL INFECTION [None]
